FAERS Safety Report 5685046-8 (Version None)
Quarter: 2008Q1

REPORT INFORMATION
  Report Type: 
  Country: None (occurrence: None)
  Receive Date: 20080328
  Receipt Date: 19990618
  Transmission Date: 20080703
  Serious: Yes (Death, Other)
  Sender: FDA-Public Use
  Company Number: US-ROCHE-208878

PATIENT
  Age: 17 Year
  Sex: Male
  Weight: 65.8 kg

DRUGS (3)
  1. KLONOPIN [Suspect]
     Indication: DEPRESSION
     Route: 048
     Dates: start: 19990121, end: 19990124
  2. ACETAMINOPHEN AND OXYCODONE HCL [Suspect]
     Indication: DRUG USE FOR UNKNOWN INDICATION
     Route: 065
     Dates: start: 19990125, end: 19990125
  3. PROZAC [Concomitant]
     Indication: DEPRESSION
     Route: 048
     Dates: start: 19990121, end: 19990124

REACTIONS (4)
  - DRUG TOXICITY [None]
  - HEADACHE [None]
  - MIGRAINE [None]
  - OVERDOSE [None]
